FAERS Safety Report 22539958 (Version 1)
Quarter: 2023Q2

REPORT INFORMATION
  Report Type: Other
  Country: AT (occurrence: AT)
  Receive Date: 20230609
  Receipt Date: 20230609
  Transmission Date: 20230721
  Serious: Yes (Other)
  Sender: FDA-Public Use
  Company Number: None

PATIENT
  Age: 29 Year
  Sex: Male

DRUGS (2)
  1. IOHEXOL [Suspect]
     Active Substance: IOHEXOL
     Indication: Computerised tomogram
     Dosage: UNK, SINGLE
     Route: 042
     Dates: start: 20230111, end: 20230111
  2. IOHEXOL [Suspect]
     Active Substance: IOHEXOL
     Indication: Product used for unknown indication

REACTIONS (7)
  - Sneezing [Unknown]
  - Nasal congestion [Unknown]
  - Type I hypersensitivity [Unknown]
  - Rash [Unknown]
  - Swelling face [Unknown]
  - Urticaria [Unknown]
  - Pruritus [Unknown]

NARRATIVE: CASE EVENT DATE: 20230111
